FAERS Safety Report 10019770 (Version 1)
Quarter: 2014Q1

REPORT INFORMATION
  Report Type: Spontaneous
  Country: US (occurrence: US)
  Receive Date: 20140318
  Receipt Date: 20140318
  Transmission Date: 20141002
  Serious: No
  Sender: FDA-Public Use
  Company Number: US-GALDERMA-US13004099

PATIENT
  Age: 55 Year
  Sex: Male

DRUGS (2)
  1. MIRVASO (BRIMONIDINE) TOPICAL GEL, 0.33% [Suspect]
     Indication: ROSACEA
     Dosage: 0.33%
     Route: 061
     Dates: start: 20130901, end: 20131211
  2. ORACEA (DOXYCYCLINE, USP) CAPSULES 40 MG [Concomitant]
     Indication: ROSACEA
     Dosage: 40MG
     Route: 048
     Dates: start: 201302

REACTIONS (2)
  - Rebound effect [Not Recovered/Not Resolved]
  - Erythema [Not Recovered/Not Resolved]
